FAERS Safety Report 13880960 (Version 2)
Quarter: 2017Q3

REPORT INFORMATION
  Report Type: Spontaneous
  Country: IT (occurrence: IT)
  Receive Date: 20170818
  Receipt Date: 20170914
  Transmission Date: 20171127
  Serious: Yes (Death, Hospitalization, Other)
  Sender: FDA-Public Use
  Company Number: IT-JAZZ-2017-IT-010506

PATIENT
  Sex: Female
  Weight: 16 kg

DRUGS (3)
  1. SOLIRIS [Suspect]
     Active Substance: ECULIZUMAB
     Indication: THROMBOTIC MICROANGIOPATHY
     Dosage: 300MG, QOW, REGIMEN 2
     Route: 042
  2. DEFITELIO [Suspect]
     Active Substance: DEFIBROTIDE SODIUM
     Indication: PRODUCT USED FOR UNKNOWN INDICATION
  3. SOLIRIS [Suspect]
     Active Substance: ECULIZUMAB
     Indication: RENAL DISORDER
     Dosage: 300MG, QW REGIMEN 1
     Route: 042
     Dates: start: 2016

REACTIONS (25)
  - Pericardial effusion [Unknown]
  - Oedema [Unknown]
  - Pleural effusion [Unknown]
  - Hepatic failure [Unknown]
  - Irritability [Unknown]
  - Weight decreased [Unknown]
  - Cardiac function test abnormal [Unknown]
  - Secretion discharge [Unknown]
  - Frustration tolerance decreased [Unknown]
  - Graft versus host disease [Unknown]
  - Cardiac disorder [Unknown]
  - Haemorrhage [Unknown]
  - Brain oedema [Recovering/Resolving]
  - Ascites [Unknown]
  - Haematemesis [Recovered/Resolved]
  - Crying [Unknown]
  - Feeling abnormal [Unknown]
  - Posterior reversible encephalopathy syndrome [Unknown]
  - Asthenia [Unknown]
  - Sleep disorder [Unknown]
  - Renal failure [Fatal]
  - Neutrophil count abnormal [Unknown]
  - Hypertension [Unknown]
  - Somnolence [Unknown]
  - Dysphagia [Unknown]

NARRATIVE: CASE EVENT DATE: 2016
